FAERS Safety Report 8457029 (Version 7)
Quarter: 2013Q3

REPORT INFORMATION
  Report Type: Report from Study
  Country: PL (occurrence: PL)
  Receive Date: 20120313
  Receipt Date: 20130727
  Transmission Date: 20140515
  Serious: Yes (Hospitalization)
  Sender: FDA-Public Use
  Company Number: PL-ROCHE-1047446

PATIENT
  Age: 44 Year
  Sex: Male
  Weight: 91.1 kg

DRUGS (10)
  1. VEMURAFENIB [Suspect]
     Indication: METASTATIC MALIGNANT MELANOMA
     Dosage: DATE OF LAST DOSE PRIOR TO SAE; 04/JUN/2012
     Route: 048
     Dates: start: 20120110
  2. VEMURAFENIB [Suspect]
     Dosage: DOSE REDUCED.?DATE OF LAST DOSE PRIOR TO SAE: 25/JUN/2012
     Route: 048
     Dates: start: 20120605
  3. VEMURAFENIB [Suspect]
     Dosage: DOSE REDUCED. LAST DOSE PRIOR TO SAE: 16/JUL/2012.
     Route: 048
     Dates: start: 20120626
  4. ZYRTEC [Concomitant]
     Route: 065
     Dates: start: 20120117
  5. HYDROCORTISONE [Concomitant]
     Route: 065
     Dates: start: 20120117
  6. BORIC ACID [Concomitant]
     Route: 065
     Dates: start: 20120117
  7. DICLAC DUO [Concomitant]
     Route: 065
     Dates: start: 20120120, end: 20120214
  8. ZALDIAR [Concomitant]
     Route: 065
     Dates: start: 20120207, end: 20120214
  9. ZALDIAR [Concomitant]
     Route: 065
     Dates: start: 20120211, end: 20120216
  10. PANTOPRAZOLE [Concomitant]
     Route: 065
     Dates: start: 20120207

REACTIONS (2)
  - Diplopia [Recovered/Resolved]
  - Uveitis [Recovered/Resolved with Sequelae]
